FAERS Safety Report 6101098-5 (Version None)
Quarter: 2009Q1

REPORT INFORMATION
  Report Type: 
  Country: None (occurrence: None)
  Receive Date: 20090227
  Receipt Date: 20090219
  Transmission Date: 20090719
  Serious: Yes (Other)
  Sender: FDA-Public Use
  Company Number: CIO09002341

PATIENT
  Age: 30 Year
  Sex: Female
  Weight: 136.1 kg

DRUGS (3)
  1. DAYQUIL COLD/FLU RELIEF, VERSION UNKNOWN (DEXTROMETHORPHAN HYDROBROMID [Suspect]
     Indication: INFLUENZA
     Dosage: 15 ML, 1 /DAY FOR 1 DAY, ORAL
     Route: 048
     Dates: start: 20090121, end: 20090121
  2. ZOLOFT [Concomitant]
  3. NORVASC [Concomitant]

REACTIONS (4)
  - ABDOMINAL DISCOMFORT [None]
  - ANAPHYLACTIC REACTION [None]
  - ANXIETY [None]
  - PALPITATIONS [None]
